FAERS Safety Report 7585265-X (Version None)
Quarter: 2011Q2

REPORT INFORMATION
  Report Type: 
  Country: None (occurrence: None)
  Receive Date: 20110629
  Receipt Date: 20110629
  Transmission Date: 20111010
  Serious: Yes (Other)
  Sender: FDA-Public Use
  Company Number: None

PATIENT
  Age: 60 Year
  Sex: Male
  Weight: 85 kg

DRUGS (1)
  1. LIDOCAINE [Suspect]

REACTIONS (8)
  - MALAISE [None]
  - FEELING HOT [None]
  - ASTHENIA [None]
  - GAIT DISTURBANCE [None]
  - DYSPNOEA [None]
  - CHEST DISCOMFORT [None]
  - HYPOAESTHESIA [None]
  - HEART RATE INCREASED [None]
